FAERS Safety Report 11197644 (Version 1)
Quarter: 2015Q2

REPORT INFORMATION
  Report Type: Report from Study
  Country: US (occurrence: US)
  Receive Date: 20150617
  Receipt Date: 20150617
  Transmission Date: 20150821
  Serious: No
  Sender: FDA-Public Use
  Company Number: US-GLAXOSMITHKLINE-US2015GSK085404

PATIENT
  Sex: Female

DRUGS (1)
  1. ORLISTAT [Suspect]
     Active Substance: ORLISTAT
     Indication: WEIGHT LOSS DIET
     Dosage: UNK
     Route: 048
     Dates: end: 20150502

REACTIONS (2)
  - Diarrhoea [Unknown]
  - Dehydration [Unknown]
